FAERS Safety Report 5025187-1 (Version None)
Quarter: 2006Q2

REPORT INFORMATION
  Report Type: 
  Country: None (occurrence: None)
  Receive Date: 20060613
  Receipt Date: 20060406
  Transmission Date: 20061013
  Serious: Yes (Life-Threatening)
  Sender: FDA-Public Use
  Company Number: FR-GLAXOSMITHKLINE-B0419335A

PATIENT
  Age: 43 Year
  Sex: Male

DRUGS (5)
  1. TRACRIUM [Suspect]
     Indication: INDUCTION OF ANAESTHESIA
     Dosage: 1UNIT UNKNOWN
     Route: 042
     Dates: start: 20050422, end: 20050422
  2. HYPNOVEL [Suspect]
     Indication: INDUCTION OF ANAESTHESIA
     Route: 042
     Dates: start: 20050422, end: 20050422
  3. DIPRIVAN [Suspect]
     Indication: INDUCTION OF ANAESTHESIA
     Route: 042
     Dates: start: 20050422, end: 20050422
  4. CEFAZOLIN SODIUM [Suspect]
     Indication: ANTIBIOTIC PROPHYLAXIS
     Dosage: 2G PER DAY
     Route: 042
     Dates: start: 20050422, end: 20050422
  5. SUFENTA [Suspect]
     Indication: INDUCTION OF ANAESTHESIA
     Route: 042
     Dates: start: 20050422, end: 20050422

REACTIONS (2)
  - ERYTHEMA [None]
  - HYPOTENSION [None]
